FAERS Safety Report 20992434 (Version 1)
Quarter: 2022Q2

REPORT INFORMATION
  Report Type: Spontaneous
  Country: US (occurrence: None)
  Receive Date: 20220621
  Receipt Date: 20220621
  Transmission Date: 20220720
  Serious: No
  Sender: FDA-Public Use
  Company Number: None

PATIENT
  Age: 79 Year
  Sex: Female

DRUGS (2)
  1. PAXLOVID [Suspect]
     Active Substance: NIRMATRELVIR\RITONAVIR
     Indication: COVID-19
     Dates: start: 20220617, end: 20220620
  2. Paxlovid 150/100mg [Concomitant]
     Dates: start: 20220617, end: 20220621

REACTIONS (3)
  - Product dispensing error [None]
  - Product dispensing issue [None]
  - Incorrect dose administered [None]

NARRATIVE: CASE EVENT DATE: 20220617
